FAERS Safety Report 15544052 (Version 2)
Quarter: 2018Q4

REPORT INFORMATION
  Report Type: Report from Study
  Country: ES (occurrence: ES)
  Receive Date: 20181023
  Receipt Date: 20181026
  Transmission Date: 20190205
  Serious: Yes (Hospitalization)
  Sender: FDA-Public Use
  Company Number: ES-BRISTOL-MYERS SQUIBB COMPANY-BMS-2018-097930

PATIENT
  Age: 33 Year
  Sex: Female
  Weight: 47 kg

DRUGS (5)
  1. LORAZEPAM. [Concomitant]
     Active Substance: LORAZEPAM
     Indication: PRODUCT USED FOR UNKNOWN INDICATION
     Dosage: 1 MG, QD
     Route: 065
     Dates: start: 20181010
  2. NIVOLUMAB [Suspect]
     Active Substance: NIVOLUMAB
     Indication: RHABDOMYOLYSIS
     Dosage: 3 MG/KG, Q2WK
     Route: 042
     Dates: start: 20181011
  3. IBUPROFEN                          /00109205/ [Concomitant]
     Active Substance: IBUPROFEN
     Indication: PRODUCT USED FOR UNKNOWN INDICATION
     Dosage: 600 MG, UNK
     Route: 065
  4. IPILIMUMAB [Suspect]
     Active Substance: IPILIMUMAB
     Indication: RHABDOMYOLYSIS
     Dosage: 1 MG/KG, Q6WK
     Route: 042
     Dates: start: 20181011
  5. OMEPRAZOLE                         /00661202/ [Concomitant]
     Active Substance: OMEPRAZOLE SODIUM
     Indication: PRODUCT USED FOR UNKNOWN INDICATION
     Dosage: 20 MG, QD
     Route: 065
     Dates: start: 20180130

REACTIONS (1)
  - Facial pain [Recovering/Resolving]

NARRATIVE: CASE EVENT DATE: 20181016
